FAERS Safety Report 7554477-3 (Version None)
Quarter: 2011Q2

REPORT INFORMATION
  Report Type: 
  Country: None (occurrence: None)
  Receive Date: 20110617
  Receipt Date: 20110614
  Transmission Date: 20111010
  Serious: Yes (Death)
  Sender: FDA-Public Use
  Company Number: A0931668A

PATIENT
  Sex: Male

DRUGS (1)
  1. PROMACTA [Suspect]
     Dosage: 50MG PER DAY
     Route: 048
     Dates: start: 20090313

REACTIONS (1)
  - DEATH [None]
